FAERS Safety Report 13119662 (Version 3)
Quarter: 2017Q1

REPORT INFORMATION
  Report Type: Spontaneous
  Country: TR (occurrence: TR)
  Receive Date: 20170117
  Receipt Date: 20170216
  Transmission Date: 20170428
  Serious: Yes (Other)
  Sender: FDA-Public Use
  Company Number: TR-AMGEN-TURSP2017006933

PATIENT
  Age: 36 Year
  Sex: Female

DRUGS (1)
  1. ENBREL [Suspect]
     Active Substance: ETANERCEPT
     Indication: ANKYLOSING SPONDYLITIS
     Dosage: 50 MG, WEEKLY
     Route: 065
     Dates: start: 20160212, end: 20161231

REACTIONS (3)
  - Systemic lupus erythematosus [Recovering/Resolving]
  - Synovitis [Recovering/Resolving]
  - Antinuclear antibody positive [Unknown]

NARRATIVE: CASE EVENT DATE: 201612
